FAERS Safety Report 18678167 (Version 1)
Quarter: 2020Q4

REPORT INFORMATION
  Report Type: Report from Study
  Country: US (occurrence: US)
  Receive Date: 20201229
  Receipt Date: 20201229
  Transmission Date: 20210114
  Serious: No
  Sender: FDA-Public Use
  Company Number: US-CLOVIS ONCOLOGY-CLO-2020-000257

PATIENT
  Sex: Female

DRUGS (3)
  1. RUBRACA [Suspect]
     Active Substance: RUCAPARIB CAMSYLATE
     Dosage: 600 MG, BID
     Route: 048
     Dates: start: 202003, end: 2020
  2. RUBRACA [Suspect]
     Active Substance: RUCAPARIB CAMSYLATE
     Indication: OVARIAN CANCER
     Dosage: 600 MG, BID
     Route: 048
     Dates: start: 201905, end: 20200227
  3. RUBRACA [Suspect]
     Active Substance: RUCAPARIB CAMSYLATE
     Dosage: 600 MG, BID
     Route: 048
     Dates: start: 201901, end: 202004

REACTIONS (16)
  - Pruritus [Recovered/Resolved]
  - Nausea [Unknown]
  - Fatigue [Unknown]
  - Disorientation [Recovered/Resolved]
  - Product use complaint [Unknown]
  - Inappropriate schedule of product administration [Unknown]
  - Lacrimation increased [Recovered/Resolved]
  - Initial insomnia [Not Recovered/Not Resolved]
  - Sunburn [Not Recovered/Not Resolved]
  - Abdominal mass [Not Recovered/Not Resolved]
  - Malaise [Recovered/Resolved]
  - Hypophagia [Recovered/Resolved]
  - Asthenia [Recovered/Resolved]
  - Nausea [Recovered/Resolved]
  - Nervousness [Recovered/Resolved]
  - Sneezing [Recovered/Resolved]

NARRATIVE: CASE EVENT DATE: 2019
